FAERS Safety Report 16387067 (Version 1)
Quarter: 2019Q2

REPORT INFORMATION
  Report Type: Spontaneous
  Country: US (occurrence: US)
  Receive Date: 20190426
  Receipt Date: 20190426
  Transmission Date: 20190711
  Serious: No
  Sender: FDA-Public Use
  Company Number: None

PATIENT
  Age: 63 Year
  Sex: Male
  Weight: 133 kg

DRUGS (2)
  1. EMPAGLIFLOZIN [Suspect]
     Active Substance: EMPAGLIFLOZIN
     Indication: OBESITY
     Route: 048
     Dates: start: 20190320, end: 20190405
  2. EMPAGLIFLOZIN [Suspect]
     Active Substance: EMPAGLIFLOZIN
     Indication: DIABETES MELLITUS
     Route: 048
     Dates: start: 20190320, end: 20190405

REACTIONS (3)
  - Blood urea increased [None]
  - Muscle spasms [None]
  - Blood creatinine increased [None]

NARRATIVE: CASE EVENT DATE: 20190405
